FAERS Safety Report 7778980-6 (Version None)
Quarter: 2011Q3

REPORT INFORMATION
  Report Type: 
  Country: None (occurrence: None)
  Receive Date: 20110926
  Receipt Date: 20110919
  Transmission Date: 20111222
  Serious: Yes (Hospitalization)
  Sender: FDA-Public Use
  Company Number: NL-PFIZER INC-2011221228

PATIENT
  Age: 54 Year
  Sex: Female
  Weight: 82 kg

DRUGS (8)
  1. OMEPRAZOLE [Concomitant]
     Dosage: 20 MG, 1X/DAY
  2. METHOTREXATE SODIUM [Suspect]
     Dosage: 10 MG, WEEKLY
  3. NEBIVOLOL HCL [Concomitant]
     Dosage: 2.5 MG, 1X/DAY
  4. ENBREL [Suspect]
     Indication: PSORIATIC ARTHROPATHY
     Dosage: 50 MG, WEEKLY
     Route: 058
     Dates: start: 20080610
  5. FOLIC ACID [Suspect]
     Dosage: 5 MG, CYCLIC
  6. LYRICA [Concomitant]
     Dosage: 75 MG, 1X/DAY
  7. PRAVASTATIN [Concomitant]
     Dosage: 70 MG, 1X/DAY
  8. EZETIMIBE [Concomitant]
     Dosage: 10 MG, 1X/DAY

REACTIONS (2)
  - ERYSIPELAS [None]
  - CELLULITIS [None]
